FAERS Safety Report 5702763-1 (Version None)
Quarter: 2008Q2

REPORT INFORMATION
  Report Type: 
  Country: None (occurrence: None)
  Receive Date: 20080411
  Receipt Date: 20080409
  Transmission Date: 20081010
  Serious: Yes (Other)
  Sender: FDA-Public Use
  Company Number: B0515952A

PATIENT
  Age: 41 Year
  Sex: Female

DRUGS (1)
  1. TELZIR [Suspect]
     Indication: HIV INFECTION
     Dosage: 1.4G PER DAY
     Route: 048
     Dates: start: 20080225, end: 20080301

REACTIONS (1)
  - DERMATITIS BULLOUS [None]
